FAERS Safety Report 6132247-0 (Version None)
Quarter: 2009Q1

REPORT INFORMATION
  Report Type: 
  Country: None (occurrence: None)
  Receive Date: 20090325
  Receipt Date: 20090319
  Transmission Date: 20090719
  Serious: Yes (Hospitalization)
  Sender: FDA-Public Use
  Company Number: US-PFIZER INC-2009184805

PATIENT
  Sex: Female
  Weight: 85.714 kg

DRUGS (16)
  1. NAPROXEN [Suspect]
     Indication: OSTEOARTHRITIS
     Dosage: UNK
     Route: 048
     Dates: start: 20080612
  2. BLINDED *PLACEBO [Suspect]
     Indication: OSTEOARTHRITIS
     Dosage: UNK
     Route: 048
     Dates: start: 20080612
  3. BLINDED CELECOXIB [Suspect]
     Indication: OSTEOARTHRITIS
     Dosage: UNK
     Route: 048
     Dates: start: 20080612
  4. IBUPROFEN TABLETS [Suspect]
     Indication: OSTEOARTHRITIS
     Dosage: UNK
     Route: 048
     Dates: start: 20080612
  5. NAPROXEN [Suspect]
     Dosage: UNK
     Route: 048
     Dates: start: 20080612
  6. NEXIUM [Concomitant]
     Dosage: UNK
     Route: 048
     Dates: start: 20080612
  7. ACETYLSALICYLIC ACID [Concomitant]
     Dosage: UNK
     Route: 048
     Dates: start: 19980401
  8. CALCIUM [Concomitant]
     Dosage: UNK
     Route: 048
     Dates: start: 19990801
  9. NIACIN [Concomitant]
     Dosage: UNK
     Route: 048
     Dates: start: 19980730
  10. LIPITOR [Concomitant]
     Dosage: UNK
     Route: 048
     Dates: start: 20040709
  11. MULTI-VITAMINS [Concomitant]
     Dosage: UNK
     Route: 048
     Dates: start: 19970101
  12. FISH OIL [Concomitant]
     Dosage: UNK
     Route: 048
     Dates: start: 20060801
  13. GLIPIZIDE [Concomitant]
     Dosage: UNK
     Route: 048
     Dates: start: 20070215
  14. AMLODIPINE [Concomitant]
     Dosage: UNK
     Route: 048
     Dates: start: 20071203
  15. VALSARTAN [Concomitant]
     Dosage: UNK
     Route: 048
     Dates: start: 20080514
  16. ULTRAM [Concomitant]
     Dosage: UNK
     Route: 048
     Dates: start: 20081203

REACTIONS (1)
  - LUMBAR SPINAL STENOSIS [None]
